FAERS Safety Report 6019556-0 (Version None)
Quarter: 2008Q4

REPORT INFORMATION
  Report Type: 
  Country: None (occurrence: None)
  Receive Date: 20081224
  Receipt Date: 20081215
  Transmission Date: 20090506
  Serious: Yes (Other)
  Sender: FDA-Public Use
  Company Number: PHHY2008DE32946

PATIENT
  Sex: Male

DRUGS (1)
  1. LIORESAL [Suspect]
     Route: 048

REACTIONS (5)
  - GASTRIC DISORDER [None]
  - INSOMNIA [None]
  - NERVOUSNESS [None]
  - TREMOR [None]
  - WITHDRAWAL SYNDROME [None]
